FAERS Safety Report 8294605 (Version 22)
Quarter: 2018Q2

REPORT INFORMATION
  Report Type: Report from Study
  Country: CA (occurrence: CA)
  Receive Date: 20111216
  Receipt Date: 20180614
  Transmission Date: 20180711
  Serious: Yes (Other)
  Sender: FDA-Public Use
  Company Number: PHHY2011CA103237

PATIENT
  Age: 51 Year
  Sex: Female

DRUGS (10)
  1. SANDOSTATIN [Suspect]
     Active Substance: OCTREOTIDE ACETATE
     Indication: NEUROENDOCRINE CARCINOMA
     Route: 058
     Dates: start: 20111122
  2. MORPHINE [Suspect]
     Active Substance: MORPHINE
     Indication: PRODUCT USED FOR UNKNOWN INDICATION
     Route: 065
  3. JANUMET [Concomitant]
     Active Substance: METFORMIN HYDROCHLORIDE\SITAGLIPTIN PHOSPHATE
     Indication: DIABETES MELLITUS
     Dosage: 2 DF, QD (50MG/1000MG)
     Route: 065
     Dates: start: 20180518
  4. SANDOSTATIN LAR DEPOT [Suspect]
     Active Substance: OCTREOTIDE ACETATE
     Dosage: 60 MG, QMO EVERY 4 WEEKS
     Route: 030
     Dates: start: 20150618
  5. SANDOSTATIN LAR DEPOT [Suspect]
     Active Substance: OCTREOTIDE ACETATE
     Indication: NEUROENDOCRINE CARCINOMA
     Dosage: 30 MG, QMO EVERY 4 WEEKS
     Route: 030
     Dates: start: 20111125
  6. SANDOSTATIN LAR DEPOT [Suspect]
     Active Substance: OCTREOTIDE ACETATE
     Dosage: 30 MG, QMO (EVERY 4 WEEKS)
     Route: 030
     Dates: start: 20140522
  7. LUTETIUM (LU 177) [Concomitant]
     Active Substance: LUTETIUM LU-177
     Indication: PRODUCT USED FOR UNKNOWN INDICATION
     Dosage: UNK
     Route: 065
  8. ENTYVIO [Concomitant]
     Active Substance: VEDOLIZUMAB
     Indication: TYPE 2 DIABETES MELLITUS
     Route: 065
  9. GLICLAZIDE [Concomitant]
     Active Substance: GLICLAZIDE
     Indication: PRODUCT USED FOR UNKNOWN INDICATION
     Route: 065
  10. SANDOSTATIN LAR DEPOT [Suspect]
     Active Substance: OCTREOTIDE ACETATE
     Dosage: 30 MG, QMO EVERY 4 WEEKS
     Route: 030
     Dates: start: 20111221

REACTIONS (39)
  - Eye disorder [Unknown]
  - Joint swelling [Unknown]
  - Peripheral swelling [Unknown]
  - Sneezing [Unknown]
  - Viral infection [Unknown]
  - Fall [Unknown]
  - Feeling abnormal [Unknown]
  - Arthralgia [Unknown]
  - Eye irritation [Unknown]
  - Eye pruritus [Unknown]
  - Cough [Unknown]
  - Fatigue [Unknown]
  - Malaise [Not Recovered/Not Resolved]
  - Injection site haemorrhage [Unknown]
  - Anal incontinence [Unknown]
  - Eye inflammation [Not Recovered/Not Resolved]
  - Proctalgia [Unknown]
  - Bronchitis [Unknown]
  - Nasal congestion [Unknown]
  - Wrong technique in product usage process [Unknown]
  - Diarrhoea [Not Recovered/Not Resolved]
  - Abnormal faeces [Unknown]
  - Rhinorrhoea [Unknown]
  - Oropharyngeal pain [Unknown]
  - Productive cough [Unknown]
  - Nausea [Unknown]
  - Flatulence [Recovered/Resolved]
  - Malignant neoplasm progression [Unknown]
  - Vision blurred [Unknown]
  - Visual impairment [Unknown]
  - Influenza like illness [Not Recovered/Not Resolved]
  - Incorrect dose administered [Unknown]
  - Synovial cyst [Unknown]
  - Eye burns [Unknown]
  - Vitreous floaters [Not Recovered/Not Resolved]
  - Nasopharyngitis [Not Recovered/Not Resolved]
  - Chills [Unknown]
  - Headache [Not Recovered/Not Resolved]
  - Influenza [Unknown]

NARRATIVE: CASE EVENT DATE: 20111125
